FAERS Safety Report 16402983 (Version 2)
Quarter: 2024Q1

REPORT INFORMATION
  Report Type: Spontaneous
  Country: US (occurrence: US)
  Receive Date: 20190607
  Receipt Date: 20240327
  Transmission Date: 20240410
  Serious: Yes (Life-Threatening, Hospitalization, Other)
  Sender: FDA-Public Use
  Company Number: None

PATIENT
  Age: 71 Year
  Sex: Female

DRUGS (13)
  1. MYCOPHENOLATE MOFETIL [Suspect]
     Active Substance: MYCOPHENOLATE MOFETIL
     Indication: Immunosuppressant drug therapy
     Dosage: 500 MILLIGRAM, BID
     Route: 065
  2. MYCOPHENOLATE MOFETIL [Suspect]
     Active Substance: MYCOPHENOLATE MOFETIL
     Dosage: 250 MILLIGRAM, BID
     Route: 065
  3. TACROLIMUS [Suspect]
     Active Substance: TACROLIMUS
     Indication: Immunosuppressant drug therapy
     Dosage: 1 MILLIGRAM, BID
     Route: 065
  4. CEPHALEXIN [Suspect]
     Active Substance: CEPHALEXIN
     Indication: Endocarditis bacterial
     Dosage: UNK
     Route: 065
  5. CEPHALEXIN [Suspect]
     Active Substance: CEPHALEXIN
     Indication: Staphylococcal sepsis
  6. FLUCONAZOLE [Suspect]
     Active Substance: FLUCONAZOLE
     Indication: Staphylococcal sepsis
     Dosage: UNK
     Route: 065
  7. FLUCONAZOLE [Suspect]
     Active Substance: FLUCONAZOLE
     Indication: Endocarditis bacterial
  8. PREDNISONE [Suspect]
     Active Substance: PREDNISONE
     Indication: Immunosuppressant drug therapy
     Dosage: 5 MILLIGRAM, QD
     Route: 065
  9. NAFCILLIN [Suspect]
     Active Substance: NAFCILLIN SODIUM
     Indication: Staphylococcal sepsis
     Dosage: UNK
     Route: 065
  10. NAFCILLIN [Suspect]
     Active Substance: NAFCILLIN SODIUM
     Indication: Endocarditis bacterial
  11. MICAFUNGIN [Suspect]
     Active Substance: MICAFUNGIN SODIUM
     Indication: Staphylococcal sepsis
     Dosage: UNK
     Route: 065
  12. MICAFUNGIN [Suspect]
     Active Substance: MICAFUNGIN SODIUM
     Indication: Endocarditis bacterial
  13. THYMOGLOBULIN [Suspect]
     Active Substance: LAPINE T-LYMPHOCYTE IMMUNE GLOBULIN
     Indication: Immunosuppressant drug therapy
     Dosage: UNK
     Route: 065

REACTIONS (14)
  - Diffuse large B-cell lymphoma [Recovered/Resolved]
  - Central nervous system lesion [Recovered/Resolved]
  - Haemorrhagic stroke [Recovered/Resolved]
  - Muscular weakness [Recovered/Resolved]
  - Brain oedema [Recovered/Resolved]
  - Post transplant lymphoproliferative disorder [Recovered/Resolved]
  - Endocarditis staphylococcal [Unknown]
  - Acute kidney injury [Recovered/Resolved]
  - Cytomegalovirus viraemia [Unknown]
  - Staphylococcal bacteraemia [Unknown]
  - Staphylococcal infection [Unknown]
  - Septic embolus [Unknown]
  - Pneumonia [Unknown]
  - Urinary tract infection [Unknown]
